FAERS Safety Report 21763504 (Version 1)
Quarter: 2022Q4

REPORT INFORMATION
  Report Type: Report from Study
  Country: FR (occurrence: FR)
  Receive Date: 20221221
  Receipt Date: 20221221
  Transmission Date: 20230113
  Serious: Yes (Other)
  Sender: FDA-Public Use
  Company Number: FR-SA-SAC20221219000520

PATIENT
  Age: 62 Year
  Sex: Male
  Weight: 95 kg

DRUGS (8)
  1. ISATUXIMAB [Suspect]
     Active Substance: ISATUXIMAB
     Indication: Plasma cell myeloma
     Dosage: 950 MG
     Dates: start: 20221115, end: 20221115
  2. ISATUXIMAB [Suspect]
     Active Substance: ISATUXIMAB
     Dosage: 950 MG
     Route: 065
     Dates: start: 20221108, end: 20221108
  3. POMALIDOMIDE [Suspect]
     Active Substance: POMALIDOMIDE
     Indication: Plasma cell myeloma
     Dosage: 3 MG
     Dates: start: 20221120, end: 20221120
  4. POMALIDOMIDE [Suspect]
     Active Substance: POMALIDOMIDE
     Dosage: 3 MG
     Dates: start: 20221108, end: 20221108
  5. CARFILZOMIB [Suspect]
     Active Substance: CARFILZOMIB
     Indication: Plasma cell myeloma
     Dosage: 58.32 MG
     Dates: start: 20221116, end: 20221116
  6. CARFILZOMIB [Suspect]
     Active Substance: CARFILZOMIB
     Dosage: 43.2 MG
     Dates: start: 20221108, end: 20221108
  7. DEXAMETHASONE [Concomitant]
     Active Substance: DEXAMETHASONE
     Indication: Plasma cell myeloma
     Dosage: 40 MG
     Dates: start: 20221115, end: 20221115
  8. DEXAMETHASONE [Concomitant]
     Active Substance: DEXAMETHASONE
     Dosage: 40 MG
     Dates: start: 20221108, end: 20221108

REACTIONS (1)
  - Thrombocytopenia [Recovered/Resolved]

NARRATIVE: CASE EVENT DATE: 20221121
